FAERS Safety Report 4294487-5 (Version None)
Quarter: 2004Q1

REPORT INFORMATION
  Report Type: 
  Country: None (occurrence: None)
  Receive Date: 20040211
  Receipt Date: 20040202
  Transmission Date: 20041129
  Serious: Yes (Other)
  Sender: FDA-Public Use
  Company Number: 2004-01-0952

PATIENT
  Age: 15 Year
  Sex: Female

DRUGS (12)
  1. TEMODAL [Suspect]
     Indication: GASTROINTESTINAL NEOPLASM
     Dosage: SEE IMAGE
     Route: 048
     Dates: start: 20031209, end: 20031213
  2. TEMODAL [Suspect]
     Indication: PERITONEAL CARCINOMA
     Dosage: SEE IMAGE
     Route: 048
     Dates: start: 20031209, end: 20031213
  3. TEMODAL [Suspect]
     Indication: GASTROINTESTINAL NEOPLASM
     Dosage: SEE IMAGE
     Route: 048
     Dates: start: 20040105, end: 20040109
  4. TEMODAL [Suspect]
     Indication: PERITONEAL CARCINOMA
     Dosage: SEE IMAGE
     Route: 048
     Dates: start: 20040105, end: 20040109
  5. TEMODAL [Suspect]
     Indication: GASTROINTESTINAL NEOPLASM
     Dosage: SEE IMAGE
     Route: 048
     Dates: start: 20040202
  6. TEMODAL [Suspect]
     Indication: PERITONEAL CARCINOMA
     Dosage: SEE IMAGE
     Route: 048
     Dates: start: 20040202
  7. LASILIX [Concomitant]
  8. ORACILLINE [Concomitant]
  9. RIVOTRIL [Concomitant]
  10. OMEPRAZOLE [Concomitant]
  11. SECTRAL [Concomitant]
  12. LOXEN [Concomitant]

REACTIONS (10)
  - ANAEMIA [None]
  - ASCITES [None]
  - HAEMORRHAGIC TUMOUR NECROSIS [None]
  - LYMPHADENOPATHY [None]
  - MENSTRUAL DISORDER [None]
  - MYALGIA [None]
  - NAUSEA [None]
  - PLATELET COUNT INCREASED [None]
  - SPLENIC NECROSIS [None]
  - WHITE BLOOD CELL COUNT INCREASED [None]
